FAERS Safety Report 10251038 (Version 6)
Quarter: 2015Q3

REPORT INFORMATION
  Report Type: Spontaneous
  Country: US (occurrence: US)
  Receive Date: 20140620
  Receipt Date: 20150702
  Transmission Date: 20151125
  Serious: Yes (Life-Threatening, Hospitalization, Other)
  Sender: FDA-Public Use
  Company Number: US-MERCK-1406USA009617

PATIENT
  Sex: Male
  Weight: 104.31 kg

DRUGS (1)
  1. JANUVIA [Suspect]
     Active Substance: SITAGLIPTIN PHOSPHATE
     Indication: TYPE 2 DIABETES MELLITUS
     Dosage: 100 MG, QD
     Route: 048
     Dates: start: 20120803, end: 20140507

REACTIONS (53)
  - Partial lung resection [Unknown]
  - Essential tremor [Unknown]
  - Retinal exudates [Unknown]
  - Nephrolithiasis [Unknown]
  - Emphysema [Unknown]
  - Fatigue [Unknown]
  - Arthralgia [Unknown]
  - Squamous cell carcinoma of lung [Unknown]
  - Metastatic squamous cell carcinoma [Unknown]
  - Renal cell carcinoma stage I [Unknown]
  - Thyroid cancer [Unknown]
  - Pancreaticosplenectomy [Unknown]
  - Pancreatitis [Unknown]
  - Pulmonary mass [Unknown]
  - Parkinson^s disease [Unknown]
  - Diabetic complication [Unknown]
  - Cataract nuclear [Unknown]
  - Arteriosclerosis [Unknown]
  - Iron deficiency [Unknown]
  - Lymphadenopathy [Unknown]
  - Insulin resistance [Unknown]
  - Essential hypertension [Unknown]
  - Macular fibrosis [Unknown]
  - Glaucoma [Unknown]
  - Retinal telangiectasia [Unknown]
  - Left ventricular hypertrophy [Unknown]
  - Pancreatic abscess [Unknown]
  - Chronic obstructive pulmonary disease [Not Recovered/Not Resolved]
  - Haematuria [Unknown]
  - Lumbar spinal stenosis [Unknown]
  - Cystoid macular oedema [Unknown]
  - Retinal haemorrhage [Unknown]
  - Nausea [Unknown]
  - Pancreatic carcinoma metastatic [Unknown]
  - Hyperlipidaemia [Unknown]
  - Renal cyst [Unknown]
  - Open angle glaucoma [Unknown]
  - Anaemia [Unknown]
  - Atrial fibrillation [Unknown]
  - Asthenia [Unknown]
  - Pulmonary fibrosis [Unknown]
  - Constipation [Unknown]
  - Nephropathy [Unknown]
  - Granuloma [Unknown]
  - Retinal vein occlusion [Unknown]
  - Nephrectomy [Unknown]
  - Acute sinusitis [Unknown]
  - Ocular hypertension [Unknown]
  - Borderline glaucoma [Unknown]
  - Retinal oedema [Unknown]
  - Eye operation [Unknown]
  - Benign lung neoplasm [Unknown]
  - Decubitus ulcer [Unknown]

NARRATIVE: CASE EVENT DATE: 201311
